FAERS Safety Report 6748173-X (Version None)
Quarter: 2010Q2

REPORT INFORMATION
  Report Type: 
  Country: None (occurrence: None)
  Receive Date: 20100531
  Receipt Date: 20100513
  Transmission Date: 20101027
  Serious: Yes (Other)
  Sender: FDA-Public Use
  Company Number: IE-BAXTER-2010BH013813

PATIENT
  Age: 33 Year
  Sex: Female
  Weight: 78 kg

DRUGS (33)
  1. SODIUM CHLORIDE 0.9% IN PLASTIC CONTAINER [Suspect]
     Indication: BREAST CANCER
     Route: 042
     Dates: start: 20060429, end: 20060429
  2. SODIUM CHLORIDE 0.9% IN PLASTIC CONTAINER [Suspect]
     Route: 042
     Dates: start: 20060429, end: 20060429
  3. SODIUM CHLORIDE 0.9% IN PLASTIC CONTAINER [Suspect]
     Route: 042
     Dates: start: 20060429, end: 20060429
  4. SODIUM CHLORIDE 0.9% IN PLASTIC CONTAINER [Suspect]
     Route: 042
     Dates: start: 20060429, end: 20060429
  5. SODIUM CHLORIDE 0.9% IN PLASTIC CONTAINER [Suspect]
     Route: 042
     Dates: start: 20060429, end: 20060429
  6. SODIUM CHLORIDE 0.9% IN PLASTIC CONTAINER [Suspect]
     Route: 042
     Dates: start: 20060429, end: 20060429
  7. SODIUM CHLORIDE 0.9% IN PLASTIC CONTAINER [Suspect]
     Route: 042
     Dates: start: 20060429, end: 20060429
  8. SODIUM CHLORIDE 0.9% IN PLASTIC CONTAINER [Suspect]
     Route: 042
     Dates: start: 20060429, end: 20060429
  9. SODIUM CHLORIDE 0.9% IN PLASTIC CONTAINER [Suspect]
     Route: 042
     Dates: start: 20060429, end: 20060429
  10. SODIUM CHLORIDE 0.9% IN PLASTIC CONTAINER [Suspect]
     Route: 042
     Dates: start: 20060429, end: 20060429
  11. SODIUM CHLORIDE 0.9% IN PLASTIC CONTAINER [Suspect]
     Route: 042
     Dates: start: 20060429, end: 20060429
  12. SODIUM CHLORIDE 0.9% IN PLASTIC CONTAINER [Suspect]
     Route: 042
     Dates: start: 20060429, end: 20060429
  13. SODIUM CHLORIDE 0.9% IN PLASTIC CONTAINER [Suspect]
     Route: 042
     Dates: start: 20060429, end: 20060429
  14. SODIUM CHLORIDE 0.9% IN PLASTIC CONTAINER [Suspect]
     Route: 042
     Dates: start: 20060429, end: 20060429
  15. SODIUM CHLORIDE 0.9% IN PLASTIC CONTAINER [Suspect]
     Route: 042
     Dates: start: 20060429, end: 20060429
  16. DOCETAXEL [Suspect]
     Indication: BREAST CANCER
     Route: 042
     Dates: start: 20060429, end: 20060429
  17. DOCETAXEL [Suspect]
     Route: 042
     Dates: start: 20060429, end: 20060429
  18. DOCETAXEL [Suspect]
     Route: 042
     Dates: start: 20060429, end: 20060429
  19. DOCETAXEL [Suspect]
     Route: 042
     Dates: start: 20060429, end: 20060429
  20. DOCETAXEL [Suspect]
     Route: 042
     Dates: start: 20060429, end: 20060429
  21. DOCETAXEL [Suspect]
     Route: 042
     Dates: start: 20060429, end: 20060429
  22. DOCETAXEL [Suspect]
     Route: 042
     Dates: start: 20060429, end: 20060429
  23. DOCETAXEL [Suspect]
     Route: 042
     Dates: start: 20060429, end: 20060429
  24. DOCETAXEL [Suspect]
     Route: 042
     Dates: start: 20060429, end: 20060429
  25. DOCETAXEL [Suspect]
     Route: 042
     Dates: start: 20060429, end: 20060429
  26. DOCETAXEL [Suspect]
     Route: 042
     Dates: start: 20060429, end: 20060429
  27. DOCETAXEL [Suspect]
     Route: 042
     Dates: start: 20060429, end: 20060429
  28. DOCETAXEL [Suspect]
     Route: 042
     Dates: start: 20060429, end: 20060429
  29. DOCETAXEL [Suspect]
     Route: 042
     Dates: start: 20060429, end: 20060429
  30. DOCETAXEL [Suspect]
     Route: 042
     Dates: start: 20060429, end: 20060429
  31. ALOXI [Concomitant]
     Indication: PROPHYLAXIS OF NAUSEA AND VOMITING
     Route: 042
     Dates: start: 20100429, end: 20100429
  32. DEXAMETHASONE [Concomitant]
     Indication: PREMEDICATION
     Route: 042
     Dates: start: 20100429, end: 20100429
  33. ALOXI [Concomitant]
     Indication: PREMEDICATION
     Route: 048
     Dates: start: 20100429, end: 20100429

REACTIONS (6)
  - CHEST DISCOMFORT [None]
  - DYSPNOEA [None]
  - FLUSHING [None]
  - HYPERSENSITIVITY [None]
  - RASH [None]
  - SYNCOPE [None]
